FAERS Safety Report 19063358 (Version 2)
Quarter: 2021Q2

REPORT INFORMATION
  Report Type: Spontaneous
  Country: US (occurrence: US)
  Receive Date: 20210326
  Receipt Date: 20210419
  Transmission Date: 20210717
  Serious: No
  Sender: FDA-Public Use
  Company Number: US-ELI_LILLY_AND_COMPANY-US202103013122

PATIENT
  Sex: Female

DRUGS (1)
  1. REYVOW [Suspect]
     Active Substance: LASMIDITAN
     Indication: MIGRAINE
     Dosage: 50 MG, UNKNOWN
     Route: 065

REACTIONS (4)
  - Paraesthesia [Unknown]
  - Drug ineffective [Unknown]
  - Insomnia [Unknown]
  - Tension [Unknown]
